FAERS Safety Report 7033846-4 (Version None)
Quarter: 2010Q4

REPORT INFORMATION
  Report Type: 
  Country: None (occurrence: None)
  Receive Date: 20101007
  Receipt Date: 20101001
  Transmission Date: 20110411
  Serious: Yes (Death)
  Sender: FDA-Public Use
  Company Number: IE-AMGEN-QUU443435

PATIENT
  Sex: Female

DRUGS (11)
  1. ENBREL [Suspect]
     Indication: RHEUMATOID ARTHRITIS
     Dosage: UNKNOWN
  2. SULFASALAZINE [Concomitant]
  3. HYDROXYCHLOROQUINE [Concomitant]
  4. ELTROXIN [Concomitant]
  5. ALENDRONATE SODIUM [Concomitant]
     Dosage: 70 MG ONCE PER WEEK ON A SATURDAY
  6. SEROQUEL [Concomitant]
     Dosage: 75MG NOCTE, 200 MG MANE
  7. PROTIUM [Concomitant]
  8. VALDOXAN [Concomitant]
     Dosage: 50 MG NOCTE
  9. RITUXIMAB [Concomitant]
     Dosage: 1000 MG (DOSAGE INTERVAL UNSPECIFIED)
     Dates: start: 20091130
  10. RITUXIMAB [Concomitant]
     Dosage: 1000 MG (DOSAGE INTERVAL UNSPECIFIED)
     Dates: start: 20100107
  11. PREDNISOLONE [Concomitant]

REACTIONS (1)
  - COMPLETED SUICIDE [None]
